FAERS Safety Report 16864678 (Version 1)
Quarter: 2019Q3

REPORT INFORMATION
  Report Type: Spontaneous
  Country: PT (occurrence: PT)
  Receive Date: 20190928
  Receipt Date: 20190928
  Transmission Date: 20191005
  Serious: Yes (Hospitalization)
  Sender: FDA-Public Use
  Company Number: PT-CANTON LABORATORIES, LLC-2075023

PATIENT
  Age: 8 Year
  Weight: 29 kg

DRUGS (1)
  1. NAPROSYN [Suspect]
     Active Substance: NAPROXEN
     Indication: HEADACHE
     Route: 048
     Dates: start: 20190305, end: 20190305

REACTIONS (1)
  - Coombs positive haemolytic anaemia [Unknown]

NARRATIVE: CASE EVENT DATE: 20190305
